FAERS Safety Report 5123085-6 (Version None)
Quarter: 2006Q4

REPORT INFORMATION
  Report Type: 
  Country: None (occurrence: None)
  Receive Date: 20061004
  Receipt Date: 20061004
  Transmission Date: 20070319
  Serious: Yes (Hospitalization)
  Sender: FDA-Public Use
  Company Number: None

PATIENT
  Age: 53 Year
  Sex: Male
  Weight: 69.9 kg

DRUGS (2)
  1. DAPTOMYCIN [Suspect]
     Indication: ARTHRITIS BACTERIAL
     Dosage: 300MG Q48H IV BOLUS
     Route: 040
  2. AZTREONAM [Suspect]
     Indication: ARTHRITIS BACTERIAL
     Dosage: 500MG Q12H IV BOLUS
     Route: 040

REACTIONS (9)
  - BLISTER [None]
  - ERYTHEMA [None]
  - ORAL MUCOSA EROSION [None]
  - PAIN [None]
  - PIGMENTATION DISORDER [None]
  - RASH [None]
  - SKIN EXFOLIATION [None]
  - SKIN ULCER [None]
  - XEROSIS [None]
